FAERS Safety Report 14256498 (Version 4)
Quarter: 2018Q3

REPORT INFORMATION
  Report Type: Spontaneous
  Country: HR (occurrence: HR)
  Receive Date: 20171206
  Receipt Date: 20180802
  Transmission Date: 20181010
  Serious: Yes (Death, Life-Threatening, Hospitalization, Other)
  Sender: FDA-Public Use
  Company Number: PHHY2017HR031447

PATIENT
  Age: 70 Year
  Sex: Female

DRUGS (9)
  1. INSULIN ASPART PROTAMINE [Concomitant]
     Dosage: 26 IU, UNK
     Route: 065
  2. NOVOMIX [Concomitant]
     Active Substance: INSULIN ASPART
     Indication: TYPE 2 DIABETES MELLITUS
     Dosage: 50 PERCENT INSULIN ASPART/50 PERCENT PROTAMINECRYSTALLIZED INSULIN AT A DOSE OF 26 IU, 16 IU AND 20
     Route: 058
  3. INSULIN ASPART PROTAMINE [Concomitant]
     Indication: TYPE 2 DIABETES MELLITUS
     Dosage: 16 IU, UNK
     Route: 065
  4. INSULIN ASPART PROTAMINE [Concomitant]
     Dosage: 20 IU, UNK
     Route: 065
  5. FUROSEMID [Concomitant]
     Active Substance: FUROSEMIDE
     Indication: PRODUCT USED FOR UNKNOWN INDICATION
     Dosage: 0.5 G, UNK
     Route: 065
  6. AMLODIPIN [Concomitant]
     Active Substance: AMLODIPINE BESYLATE
     Indication: PRODUCT USED FOR UNKNOWN INDICATION
     Dosage: 10 MG, UNK
     Route: 065
  7. GLIMEPIRIDE. [Concomitant]
     Active Substance: GLIMEPIRIDE
     Indication: TYPE 2 DIABETES MELLITUS
     Route: 065
  8. BISOPROLOL [Concomitant]
     Active Substance: BISOPROLOL
     Indication: PRODUCT USED FOR UNKNOWN INDICATION
     Dosage: 2.5 MG, UNK
     Route: 065
  9. METFORMIN [Suspect]
     Active Substance: METFORMIN HYDROCHLORIDE
     Indication: TYPE 2 DIABETES MELLITUS
     Dosage: 1 G, UNK
     Route: 065

REACTIONS (24)
  - Renal failure [Fatal]
  - Pallor [Fatal]
  - Hypothermia [Fatal]
  - Dry skin [Fatal]
  - Skin turgor decreased [Fatal]
  - Blood chloride decreased [Fatal]
  - Blood potassium increased [Fatal]
  - Asthenia [Fatal]
  - Diarrhoea [Fatal]
  - Hypotension [Fatal]
  - Hypoglycaemia [Fatal]
  - PCO2 decreased [Fatal]
  - Lactic acidosis [Fatal]
  - Cardio-respiratory arrest [Fatal]
  - Blood pH decreased [Fatal]
  - Bradycardia [Fatal]
  - PO2 increased [Fatal]
  - Dehydration [Fatal]
  - Vomiting [Fatal]
  - Loss of consciousness [Fatal]
  - Blood bicarbonate decreased [Fatal]
  - Azotaemia [Fatal]
  - Respiratory failure [Fatal]
  - Atrial fibrillation [Fatal]
